FAERS Safety Report 8334266-2 (Version None)
Quarter: 2012Q2

REPORT INFORMATION
  Report Type: 
  Country: None (occurrence: None)
  Receive Date: 20120503
  Receipt Date: 20120426
  Transmission Date: 20120825
  Serious: Yes (Hospitalization)
  Sender: FDA-Public Use
  Company Number: PHHY2012JP035711

PATIENT
  Age: 48 Year
  Sex: Male

DRUGS (5)
  1. VANCOMYCIN [Suspect]
     Dosage: 30 MG, QD
  2. VANCOMYCIN [Suspect]
     Indication: BRAIN ABSCESS
     Dosage: 20 MG, QD
  3. MEROPENEM [Concomitant]
     Dosage: 4 G, BID
  4. DEXAMETHASONE [Concomitant]
     Dosage: 16 MG, BID
  5. ANTIBIOTICS [Concomitant]
     Route: 042

REACTIONS (4)
  - BRAIN OEDEMA [None]
  - EPENDYMITIS [None]
  - DRUG INEFFECTIVE [None]
  - COGNITIVE DISORDER [None]
